FAERS Safety Report 25339938 (Version 1)
Quarter: 2025Q2

REPORT INFORMATION
  Report Type: Spontaneous
  Country: US (occurrence: US)
  Receive Date: 20250521
  Receipt Date: 20250521
  Transmission Date: 20250717
  Serious: Yes (Other)
  Sender: SYNDAX
  Company Number: US-SYNDAX PHARMACEUTICALS, INC.-2025US000432

PATIENT
  Age: 20 Month

DRUGS (1)
  1. REVUFORJ [Suspect]
     Active Substance: REVUMENIB CITRATE
     Indication: Adjuvant therapy
     Route: 065

REACTIONS (3)
  - Cerebral haemorrhage [Unknown]
  - Leukoencephalopathy [Unknown]
  - Mental status changes [Unknown]
